FAERS Safety Report 15793388 (Version 1)
Quarter: 2019Q1

REPORT INFORMATION
  Report Type: Spontaneous
  Country: US (occurrence: US)
  Receive Date: 20190107
  Receipt Date: 20190107
  Transmission Date: 20190417
  Serious: No
  Sender: FDA-Public Use
  Company Number: PHEH2018US040878

PATIENT
  Sex: Female

DRUGS (1)
  1. APEXICON [Suspect]
     Active Substance: DIFLORASONE DIACETATE
     Indication: ECZEMA
     Dosage: UNK
     Route: 065

REACTIONS (1)
  - Eczema [Recovering/Resolving]
